FAERS Safety Report 7026409-8 (Version None)
Quarter: 2010Q4

REPORT INFORMATION
  Report Type: 
  Country: None (occurrence: None)
  Receive Date: 20101004
  Receipt Date: 20100517
  Transmission Date: 20110411
  Serious: Yes (Other)
  Sender: FDA-Public Use
  Company Number: US-ASTRAZENECA-2009UW16506

PATIENT
  Age: 16094 Day
  Sex: Male

DRUGS (15)
  1. SEROQUEL [Suspect]
     Dosage: 300
     Route: 048
     Dates: start: 20030117
  2. ZOLOFT [Concomitant]
     Dates: start: 20030117
  3. OXYCONTIN [Concomitant]
     Dosage: 10 MG 2 TABS, QD
     Dates: start: 20030117
  4. PRILOSEC [Concomitant]
     Dates: start: 20030117
  5. K-DUR [Concomitant]
     Dates: start: 20030117
  6. ZOCOR [Concomitant]
     Dates: start: 20030117
  7. LASIX [Concomitant]
     Dates: start: 20030117
  8. TERAZOSIN HCL [Concomitant]
     Dates: start: 20030117
  9. CLARINEX [Concomitant]
     Dates: start: 20030117
  10. RISPERDAL [Concomitant]
     Dosage: 0.5 MG, 2 TABS, QD
     Dates: start: 20030117
  11. PRANDIL [Concomitant]
     Dates: start: 20030117
  12. MOBIC [Concomitant]
     Dates: start: 20030117
  13. ULTRAM [Concomitant]
     Dates: start: 20030929
  14. PLENDIL [Concomitant]
     Dates: start: 20030929
  15. GUAIFENESIN [Concomitant]
     Dates: start: 20030929

REACTIONS (4)
  - BLOOD GLUCOSE INCREASED [None]
  - DIABETES MELLITUS INADEQUATE CONTROL [None]
  - DIABETIC NEUROPATHY [None]
  - TYPE 2 DIABETES MELLITUS [None]
